FAERS Safety Report 6386342-1 (Version None)
Quarter: 2009Q4

REPORT INFORMATION
  Report Type: 
  Country: None (occurrence: None)
  Receive Date: 20091002
  Receipt Date: 20090928
  Transmission Date: 20100525
  Serious: Yes (Other)
  Sender: FDA-Public Use
  Company Number: US-JNJFOC-20090806767

PATIENT
  Sex: Female

DRUGS (4)
  1. INVEGA [Suspect]
     Indication: BIPOLAR DISORDER
     Route: 048
  2. EFFEXOR XR [Concomitant]
     Indication: BIPOLAR I DISORDER
  3. TEGRETOL [Concomitant]
     Indication: BIPOLAR DISORDER
  4. HYDROXYZINE [Concomitant]
     Indication: ANXIETY
     Dosage: 10 TO 20 MG DAILY DOSAGE.

REACTIONS (3)
  - BLOOD PROLACTIN ABNORMAL [None]
  - GALACTORRHOEA [None]
  - WEIGHT INCREASED [None]
